FAERS Safety Report 26198551 (Version 1)
Quarter: 2025Q4

REPORT INFORMATION
  Report Type: Spontaneous
  Country: EU (occurrence: EU)
  Receive Date: 20251224
  Receipt Date: 20251224
  Transmission Date: 20260117
  Serious: Yes (Other)
  Sender: BRISTOL-MYERS SQUIBB COMPANY
  Company Number: EU-BRISTOL-MYERS SQUIBB COMPANY-2025-172303

PATIENT
  Age: 70 Year
  Sex: Male

DRUGS (1)
  1. NIVOLUMAB [Suspect]
     Active Substance: NIVOLUMAB
     Indication: Metastatic renal cell carcinoma

REACTIONS (6)
  - Glucocorticoid deficiency [Recovered/Resolved with Sequelae]
  - Hyponatraemia [Recovered/Resolved]
  - Immune-mediated hypophysitis [Recovered/Resolved with Sequelae]
  - Orthostatic hypotension [Recovered/Resolved]
  - Circulatory collapse [Recovered/Resolved]
  - Central hypothyroidism [Recovered/Resolved with Sequelae]

NARRATIVE: CASE EVENT DATE: 20230401
